FAERS Safety Report 9148850 (Version 1)
Quarter: 2013Q1

REPORT INFORMATION
  Report Type: Spontaneous
  Country: GB (occurrence: None)
  Receive Date: 20130130
  Receipt Date: 20130130
  Transmission Date: 20140127
  Serious: Yes (Other)
  Sender: FDA-Public Use
  Company Number: AUR-APL-2013-00996

PATIENT
  Age: 46 Year
  Sex: Male

DRUGS (2)
  1. LAMOTRIGINE (LAMOTRIGINE) [Suspect]
     Indication: CONVULSION
     Dosage: (500 MG),  UNKNOWN?01/  /1999  -  ONGOING
     Dates: start: 199901
  2. CELLCEPT (MYCOPHENOLATE MOFETIL) TABLET [Concomitant]

REACTIONS (13)
  - Chorioretinitis [None]
  - Retinal degeneration [None]
  - Blindness unilateral [None]
  - Glossodynia [None]
  - Dyspnoea [None]
  - Nightmare [None]
  - Parasomnia [None]
  - Drug ineffective [None]
  - Respiration abnormal [None]
  - Muscle twitching [None]
  - Post-traumatic headache [None]
  - Lip pain [None]
  - Partial seizures [None]
